FAERS Safety Report 5042079-2 (Version None)
Quarter: 2006Q2

REPORT INFORMATION
  Report Type: 
  Country: None (occurrence: None)
  Receive Date: 20060630
  Receipt Date: 20060615
  Transmission Date: 20061013
  Serious: Yes (Hospitalization)
  Sender: FDA-Public Use
  Company Number: 2006AD000043

PATIENT
  Age: 70 Year
  Sex: Male

DRUGS (10)
  1. CEPHALEXIN [Suspect]
     Indication: LOWER RESPIRATORY TRACT INFECTION
     Dosage: 250 MG; TID; PO
     Route: 048
     Dates: start: 20060515, end: 20060516
  2. FEXOFENADINE [Concomitant]
  3. .................. [Concomitant]
  4. GLIBENCLAMIDE [Concomitant]
  5. HYDROXYZINE [Concomitant]
  6. LISINOPRIL [Concomitant]
  7. METFORMIN [Concomitant]
  8. RANITIDINE [Concomitant]
  9. SIMVASTATIN [Concomitant]
  10. ASPIRIN SOLUTION [Concomitant]

REACTIONS (5)
  - BLOOD PRESSURE DECREASED [None]
  - BRADYCARDIA [None]
  - DYSPHAGIA [None]
  - DYSPNOEA [None]
  - RASH [None]
